FAERS Safety Report 4822727-X (Version None)
Quarter: 2005Q4

REPORT INFORMATION
  Report Type: 
  Country: None (occurrence: None)
  Receive Date: 20051104
  Receipt Date: 20051024
  Transmission Date: 20060501
  Serious: Yes (Other)
  Sender: FDA-Public Use
  Company Number: 2005JP002102

PATIENT
  Age: 54 Year
  Sex: Male

DRUGS (4)
  1. PROGRAF [Suspect]
     Indication: RENAL TRANSPLANT
     Dates: start: 20040701
  2. MYCOPHENOLATE MOFETIL (MYCOPHENOLATE MOFETIL) [Suspect]
     Indication: RENAL TRANSPLANT
     Dosage: 1000.00 MG, /D,
     Dates: start: 20040701, end: 20050101
  3. METHYLPREDNISOLONE [Concomitant]
  4. BASILIXIMAB (BASILIXIMAB) [Concomitant]

REACTIONS (3)
  - ANOREXIA [None]
  - PANCYTOPENIA [None]
  - WEIGHT DECREASED [None]
